FAERS Safety Report 6530937-9 (Version None)
Quarter: 2010Q1

REPORT INFORMATION
  Report Type: 
  Country: None (occurrence: None)
  Receive Date: 20100108
  Receipt Date: 20090622
  Transmission Date: 20100710
  Serious: No
  Sender: FDA-Public Use
  Company Number: A0793089A

PATIENT
  Age: 70 Year
  Sex: Female

DRUGS (4)
  1. LOVAZA [Suspect]
     Dosage: 4CAPL PER DAY
     Route: 048
     Dates: start: 20090201
  2. LIPITOR [Concomitant]
  3. BABY ASPIRIN [Concomitant]
  4. SYNTHROID [Concomitant]

REACTIONS (2)
  - ERUCTATION [None]
  - THERAPEUTIC RESPONSE UNEXPECTED [None]
